FAERS Safety Report 5101375-0 (Version None)
Quarter: 2006Q3

REPORT INFORMATION
  Report Type: 
  Country: None (occurrence: None)
  Receive Date: 20060911
  Receipt Date: 20060814
  Transmission Date: 20061208
  Serious: Yes (Other)
  Sender: FDA-Public Use
  Company Number: US-ROCHE-459688

PATIENT
  Age: 19 Year
  Sex: Female

DRUGS (1)
  1. ACCUTANE [Suspect]
     Indication: DRUG USE FOR UNKNOWN INDICATION
     Route: 048
     Dates: start: 20060505, end: 20060705

REACTIONS (3)
  - ABDOMINAL PAIN [None]
  - GASTROINTESTINAL INFLAMMATION [None]
  - RECTAL HAEMORRHAGE [None]
